FAERS Safety Report 8394639-9 (Version None)
Quarter: 2012Q2

REPORT INFORMATION
  Report Type: 
  Country: None (occurrence: None)
  Receive Date: 20120529
  Receipt Date: 20120529
  Transmission Date: 20120825
  Serious: Yes (Life-Threatening, Hospitalization)
  Sender: FDA-Public Use
  Company Number: None

PATIENT
  Age: 15 Year
  Sex: Female
  Weight: 63.5036 kg

DRUGS (1)
  1. PAROXETINE [Suspect]
     Indication: ANXIETY
     Dosage: 30MG ONCE DAILY AT 8PM PO
     Route: 048
     Dates: start: 20110415, end: 20120524

REACTIONS (1)
  - CONVULSION [None]
